FAERS Safety Report 11176500 (Version 2)
Quarter: 2015Q3

REPORT INFORMATION
  Report Type: Report from Study
  Country: CA (occurrence: CA)
  Receive Date: 20150610
  Receipt Date: 20150729
  Transmission Date: 20151125
  Serious: Yes (Hospitalization)
  Sender: FDA-Public Use
  Company Number: CA-ROCHE-1591707

PATIENT
  Sex: Female

DRUGS (4)
  1. RANIBIZUMAB [Suspect]
     Active Substance: RANIBIZUMAB
     Indication: NEOVASCULAR AGE-RELATED MACULAR DEGENERATION
     Dosage: MOST RECENT DOSE RECEIVED ON 31/JUL/2014.
     Route: 050
     Dates: start: 20140731
  2. ATIVAN [Concomitant]
     Active Substance: LORAZEPAM
  3. CEPHALEXIN. [Concomitant]
     Active Substance: CEPHALEXIN
  4. DEXILANT [Concomitant]
     Active Substance: DEXLANSOPRAZOLE

REACTIONS (5)
  - Syncope [Not Recovered/Not Resolved]
  - Peau d^orange [Not Recovered/Not Resolved]
  - Arthritis [Not Recovered/Not Resolved]
  - Eye pain [Not Recovered/Not Resolved]
  - Headache [Not Recovered/Not Resolved]
